FAERS Safety Report 24052425 (Version 1)
Quarter: 2024Q3

REPORT INFORMATION
  Report Type: Report from Study
  Country: UY (occurrence: UY)
  Receive Date: 20240704
  Receipt Date: 20240704
  Transmission Date: 20241016
  Serious: Yes (Other)
  Sender: ABBVIE
  Company Number: UY-ABBVIE-5820427

PATIENT
  Sex: Female

DRUGS (3)
  1. RINVOQ [Suspect]
     Active Substance: UPADACITINIB
     Indication: Rheumatoid arthritis
     Dosage: STRENGTH: 15 MG
     Route: 048
     Dates: start: 20221022
  2. IRON [Suspect]
     Active Substance: IRON
     Indication: Anaemia
     Dosage: FREQUENCY: UNKNOWN
     Route: 048
     Dates: start: 202312
  3. IRON [Suspect]
     Active Substance: IRON
     Indication: Anaemia
     Route: 042
     Dates: start: 20240505, end: 20240625

REACTIONS (5)
  - Serum ferritin decreased [Recovered/Resolved]
  - Constipation [Unknown]
  - Blood loss anaemia [Recovering/Resolving]
  - Gastritis [Recovering/Resolving]
  - Haemorrhoids [Recovering/Resolving]

NARRATIVE: CASE EVENT DATE: 20230101
